FAERS Safety Report 6218791-6 (Version None)
Quarter: 2009Q2

REPORT INFORMATION
  Report Type: 
  Country: None (occurrence: None)
  Receive Date: 20090608
  Receipt Date: 20090602
  Transmission Date: 20091009
  Serious: No
  Sender: FDA-Public Use
  Company Number: US-B.I. PHARMACEUTICALS,INC./RIDGEFIELD-2009-BP-06764BP

PATIENT
  Age: 87 Year
  Sex: Female

DRUGS (4)
  1. SPIRIVA [Suspect]
     Indication: PULMONARY HYPERTENSION
     Dosage: 18MCG
     Route: 055
     Dates: start: 20081231
  2. ACETAMINOPHEN [Concomitant]
     Indication: ARTHRITIS
     Route: 048
  3. ACETAMINOPHEN [Concomitant]
     Indication: SPINAL COLUMN STENOSIS
  4. TIGER BALM [Concomitant]
     Route: 061

REACTIONS (2)
  - ERYTHEMA [None]
  - PRURITUS [None]
